FAERS Safety Report 14683396 (Version 1)
Quarter: 2018Q1

REPORT INFORMATION
  Report Type: Spontaneous
  Country: US (occurrence: US)
  Receive Date: 20180327
  Receipt Date: 20180327
  Transmission Date: 20180509
  Serious: Yes (Hospitalization, Other)
  Sender: FDA-Public Use
  Company Number: US-PFIZER INC-2018124293

PATIENT
  Age: 25 Year
  Sex: Female
  Weight: 81.65 kg

DRUGS (4)
  1. CIPRO [Concomitant]
     Active Substance: CIPROFLOXACIN HYDROCHLORIDE
     Indication: UROSEPSIS
     Dosage: 500 MG, UNK
     Route: 042
     Dates: start: 20180123, end: 20180123
  2. VANCOMYCIN [Concomitant]
     Active Substance: VANCOMYCIN
     Indication: UROSEPSIS
     Dosage: 500 MG, 2X/DAY
     Route: 042
     Dates: start: 20180123, end: 20180126
  3. DAPTOMYCIN. [Suspect]
     Active Substance: DAPTOMYCIN
     Indication: UROSEPSIS
     Dosage: UNK UNK, 1X/DAY
     Route: 042
     Dates: start: 20180127, end: 20180203
  4. LEVAQUIN [Concomitant]
     Active Substance: LEVOFLOXACIN
     Indication: PREOPERATIVE CARE
     Dosage: 250 MG, UNK
     Route: 042
     Dates: start: 20180121, end: 20180121

REACTIONS (5)
  - Paraesthesia [Unknown]
  - Liver function test abnormal [Unknown]
  - Arthralgia [Unknown]
  - Tremor [Unknown]
  - Rhabdomyolysis [Unknown]

NARRATIVE: CASE EVENT DATE: 2018
